FAERS Safety Report 4895599-5 (Version None)
Quarter: 2006Q1

REPORT INFORMATION
  Report Type: 
  Country: None (occurrence: None)
  Receive Date: 20060125
  Receipt Date: 20060117
  Transmission Date: 20060701
  Serious: Yes (Other)
  Sender: FDA-Public Use
  Company Number: 163-20785-06010369

PATIENT

DRUGS (1)
  1. THALOMID [Suspect]
     Indication: MYELOPROLIFERATIVE DISORDER
     Dosage: ORAL
     Route: 048

REACTIONS (2)
  - ARTERIAL THROMBOSIS [None]
  - GANGRENE [None]
